FAERS Safety Report 17713112 (Version 1)
Quarter: 2020Q2

REPORT INFORMATION
  Report Type: Spontaneous
  Country: US (occurrence: US)
  Receive Date: 20200427
  Receipt Date: 20200427
  Transmission Date: 20200714
  Serious: Yes (Other)
  Sender: FDA-Public Use
  Company Number: None

PATIENT
  Age: 45 Year
  Sex: Male
  Weight: 72 kg

DRUGS (11)
  1. BUDESONIDE ORAL .2 MG/ML SUSPENSION [Suspect]
     Active Substance: BUDESONIDE
     Indication: EOSINOPHILIC OESOPHAGITIS
     Dosage: ?          QUANTITY:5 ML;?
     Route: 048
     Dates: start: 20200424, end: 20200425
  2. NABUMETONE. [Concomitant]
     Active Substance: NABUMETONE
  3. VITAMIN B12 [Concomitant]
     Active Substance: CYANOCOBALAMIN
  4. IMODIUM [Concomitant]
     Active Substance: LOPERAMIDE HYDROCHLORIDE
  5. PANTAPRAZOLE [Concomitant]
     Active Substance: PANTOPRAZOLE SODIUM
  6. FAMOTIDINE. [Concomitant]
     Active Substance: FAMOTIDINE
  7. HEARTBURN PROBIOTIC [Concomitant]
  8. TUMS [Concomitant]
     Active Substance: CALCIUM CARBONATE
  9. LORATADINE. [Concomitant]
     Active Substance: LORATADINE
  10. VITAMIN D3 [Concomitant]
     Active Substance: CHOLECALCIFEROL
  11. MAGNESIUM CITRATE. [Concomitant]
     Active Substance: MAGNESIUM CITRATE

REACTIONS (2)
  - Rash erythematous [None]
  - Hypersensitivity [None]

NARRATIVE: CASE EVENT DATE: 20200425
